FAERS Safety Report 5254303-1 (Version None)
Quarter: 2007Q1

REPORT INFORMATION
  Report Type: 
  Country: None (occurrence: None)
  Receive Date: 20070302
  Receipt Date: 20070220
  Transmission Date: 20070707
  Serious: Yes (Other)
  Sender: FDA-Public Use
  Company Number: 2007GB00363

PATIENT
  Age: 44 Year
  Sex: Female

DRUGS (3)
  1. QUETIAPINE FUMARATE [Suspect]
     Indication: PSYCHOTIC DISORDER
     Route: 048
     Dates: start: 20061010
  2. DEPAKOTE [Concomitant]
     Route: 048
     Dates: start: 20060101
  3. SERTRALINE [Concomitant]
     Route: 048
     Dates: start: 20060101

REACTIONS (2)
  - RESTLESS LEGS SYNDROME [None]
  - RESTLESSNESS [None]
